FAERS Safety Report 7352125-9 (Version None)
Quarter: 2011Q1

REPORT INFORMATION
  Report Type: 
  Country: None (occurrence: None)
  Receive Date: 20110315
  Receipt Date: 20110309
  Transmission Date: 20110831
  Serious: Yes (Death, Hospitalization)
  Sender: FDA-Public Use
  Company Number: JP-BAYER-201012384BYL

PATIENT
  Sex: Male
  Weight: 45.8 kg

DRUGS (15)
  1. MORPHINE SULFATE [Concomitant]
     Indication: CANCER PAIN
     Dosage: 30 MG (DAILY DOSE), , ORAL
     Route: 048
     Dates: start: 20100316
  2. NAIXAN [Concomitant]
     Indication: CANCER PAIN
     Route: 048
     Dates: start: 20100212
  3. PURSENNID [Concomitant]
     Indication: CONSTIPATION
     Dosage: 12-24 MG A DAY
     Route: 048
     Dates: start: 20100223
  4. PREDONINE [Concomitant]
     Indication: DECREASED APPETITE
     Dosage: 10 MG (DAILY DOSE), , ORAL
     Route: 048
     Dates: start: 20100406
  5. OXINORM [Concomitant]
     Indication: CANCER PAIN
     Route: 048
     Dates: start: 20100223
  6. MAGMITT [Concomitant]
     Route: 048
  7. POTACOL-R [Concomitant]
     Indication: DECREASED APPETITE
     Route: 041
     Dates: start: 20100419, end: 20100420
  8. BLOPRESS [Concomitant]
     Indication: HYPERTENSION
     Dosage: 4 MG (DAILY DOSE), , ORAL
     Route: 048
     Dates: start: 20080101
  9. GAMOFA [Concomitant]
     Route: 048
  10. POTACOL-R [Concomitant]
     Dosage: 750 ML (DAILY DOSE), , IV DRIP
     Route: 041
     Dates: start: 20100420
  11. ACINON [Concomitant]
     Indication: REFLUX OESOPHAGITIS
     Dosage: 300 MG (DAILY DOSE), , ORAL
     Route: 048
     Dates: start: 20020101
  12. ABOVIS [Concomitant]
     Indication: GASTRITIS
     Dosage: 150 MG (DAILY DOSE), , ORAL
     Route: 048
     Dates: start: 20020101
  13. SORAFENIB (RAF KINASE INHIBITOR) [Suspect]
     Indication: LUNG ADENOCARCINOMA
     Route: 048
     Dates: start: 20100223, end: 20100515
  14. PANTOSIN [Concomitant]
     Indication: CONSTIPATION
     Dosage: 300 MG (DAILY DOSE), , ORAL
     Route: 048
     Dates: start: 20020101
  15. MAGNESIUM OXIDE [Concomitant]
     Indication: CONSTIPATION
     Dosage: 2 G (DAILY DOSE), , ORAL
     Route: 048
     Dates: start: 20100316

REACTIONS (4)
  - METABOLIC ACIDOSIS [None]
  - ATRIAL FIBRILLATION [None]
  - PNEUMONIA [None]
  - CARDIAC FAILURE [None]
